FAERS Safety Report 5003684-2 (Version None)
Quarter: 2006Q2

REPORT INFORMATION
  Report Type: 
  Country: None (occurrence: None)
  Receive Date: 20060516
  Receipt Date: 20050414
  Transmission Date: 20061013
  Serious: Yes (Hospitalization, Other)
  Sender: FDA-Public Use
  Company Number: US-MERCK-0504USA02775

PATIENT
  Age: 53 Year
  Sex: Female
  Weight: 82 kg

DRUGS (18)
  1. VIOXX [Suspect]
     Indication: CHEST PAIN
     Route: 048
     Dates: start: 19990601, end: 20040901
  2. HYDROCODONE BITARTRATE + ACETAMINOPHEN [Concomitant]
     Route: 065
  3. PAXIL [Concomitant]
     Route: 065
  4. PROPOXYPHENE HYDROCHLORIDE [Concomitant]
     Route: 065
  5. CLARITIN [Concomitant]
     Route: 065
  6. PREMARIN [Concomitant]
     Route: 065
  7. GEMFIBROZIL [Concomitant]
     Route: 065
  8. AMITRIPTYLINE HYDROCHLORIDE [Concomitant]
     Route: 065
  9. DIPYRIDAMOLE [Concomitant]
     Route: 065
  10. DILTIAZEM HYDROCHLORIDE [Concomitant]
     Route: 065
  11. LIPITOR [Concomitant]
     Route: 065
  12. ECOTRIN [Concomitant]
     Route: 065
  13. NITROGLYCERIN [Concomitant]
     Route: 065
  14. LIDODERM [Concomitant]
     Route: 065
  15. ISOSORBIDE [Concomitant]
     Route: 065
  16. ATENOLOL [Concomitant]
     Route: 065
  17. ACCUPRIL [Concomitant]
     Route: 065
  18. PRINIVIL [Concomitant]
     Route: 065

REACTIONS (5)
  - ABDOMINAL HERNIA [None]
  - CARDIAC DISORDER [None]
  - CHEST PAIN [None]
  - CORONARY ARTERY OCCLUSION [None]
  - INJURY [None]
